FAERS Safety Report 8226124-9 (Version None)
Quarter: 2012Q1

REPORT INFORMATION
  Report Type: 
  Country: None (occurrence: None)
  Receive Date: 20120319
  Receipt Date: 20120309
  Transmission Date: 20120608
  Serious: Yes (Hospitalization)
  Sender: FDA-Public Use
  Company Number: 2012AP000693

PATIENT
  Age: 53 Year
  Sex: Female

DRUGS (4)
  1. CLOZAPINE [Suspect]
     Indication: BIPOLAR DISORDER
     Dosage: 525 MG;QD
  2. LITHIUM CARBONATE [Suspect]
     Indication: BIPOLAR DISORDER
     Dosage: 600 MG;QD
  3. POLYETHYLENE GLYCOL [Concomitant]
  4. LOPERAMIDE [Concomitant]

REACTIONS (10)
  - ORTHOSTATIC HYPOTENSION [None]
  - EYE MOVEMENT DISORDER [None]
  - OEDEMA PERIPHERAL [None]
  - ATRIOVENTRICULAR BLOCK COMPLETE [None]
  - BRADYPHRENIA [None]
  - PALPITATIONS [None]
  - CENTRAL VENOUS PRESSURE INCREASED [None]
  - EXTENSOR PLANTAR RESPONSE [None]
  - MOTOR DYSFUNCTION [None]
  - HYPOAESTHESIA [None]
